FAERS Safety Report 5514715-5 (Version None)
Quarter: 2007Q4

REPORT INFORMATION
  Report Type: 
  Country: None (occurrence: None)
  Receive Date: 20071113
  Receipt Date: 20071102
  Transmission Date: 20080405
  Serious: Yes (Other)
  Sender: FDA-Public Use
  Company Number: US-PFIZER INC-2007092857

PATIENT
  Sex: Male

DRUGS (1)
  1. EXUBERA [Suspect]
     Indication: BLOOD GLUCOSE INCREASED
     Dates: start: 20070101, end: 20070101

REACTIONS (1)
  - HAEMOPTYSIS [None]
